FAERS Safety Report 13745798 (Version 1)
Quarter: 2017Q3

REPORT INFORMATION
  Report Type: Report from Study
  Country: BR (occurrence: BR)
  Receive Date: 20170712
  Receipt Date: 20170712
  Transmission Date: 20171127
  Serious: Yes (Other)
  Sender: FDA-Public Use
  Company Number: PHHY2016BR125217

PATIENT
  Sex: Female
  Weight: 39 kg

DRUGS (2)
  1. OMNITROPE [Suspect]
     Active Substance: SOMATROPIN
     Dosage: 1 MG, QD
     Route: 058
     Dates: end: 201702
  2. OMNITROPE [Suspect]
     Active Substance: SOMATROPIN
     Indication: RETT SYNDROME
     Dosage: 0.20 MG, QD
     Route: 058
     Dates: start: 201608

REACTIONS (7)
  - Off label use [Unknown]
  - Nervousness [Unknown]
  - Tooth injury [Unknown]
  - Toothache [Unknown]
  - Supernumerary teeth [Unknown]
  - Tooth abscess [Unknown]
  - Pulpitis dental [Recovered/Resolved]
